FAERS Safety Report 7587816-8 (Version None)
Quarter: 2011Q3

REPORT INFORMATION
  Report Type: 
  Country: None (occurrence: None)
  Receive Date: 20110705
  Receipt Date: 20110623
  Transmission Date: 20111222
  Serious: No
  Sender: FDA-Public Use
  Company Number: US-BIOGENIDEC-2011BI023158

PATIENT
  Age: 33 Year
  Sex: Female

DRUGS (4)
  1. ZONEGRAN [Concomitant]
     Indication: EPILEPSY
  2. LAMICTAL [Concomitant]
     Indication: EPILEPSY
  3. TYSABRI [Suspect]
     Indication: MULTIPLE SCLEROSIS
     Route: 030
     Dates: start: 20110622
  4. DEPAKOTE [Concomitant]
     Indication: EPILEPSY

REACTIONS (5)
  - EYE MOVEMENT DISORDER [None]
  - COGNITIVE DISORDER [None]
  - VERTIGO [None]
  - POSTICTAL STATE [None]
  - MOTOR DYSFUNCTION [None]
